FAERS Safety Report 6914661-6 (Version None)
Quarter: 2010Q3

REPORT INFORMATION
  Report Type: 
  Country: None (occurrence: None)
  Receive Date: 20100809
  Receipt Date: 20100803
  Transmission Date: 20110219
  Serious: Yes (Other)
  Sender: FDA-Public Use
  Company Number: US-MERCK-1007USA01772

PATIENT
  Age: 5 Year
  Sex: Male
  Weight: 23 kg

DRUGS (4)
  1. SINGULAIR [Suspect]
     Indication: ASTHMA
     Route: 048
     Dates: start: 20080201, end: 20100601
  2. ZYRTEC [Concomitant]
     Route: 065
  3. NASONEX [Concomitant]
     Route: 065
  4. XOPENEX [Concomitant]
     Route: 065

REACTIONS (4)
  - DEPRESSION [None]
  - MENTAL DISORDER [None]
  - MOOD SWINGS [None]
  - SUICIDAL IDEATION [None]
